FAERS Safety Report 23454157 (Version 1)
Quarter: 2024Q1

REPORT INFORMATION
  Report Type: Spontaneous
  Country: US (occurrence: US)
  Receive Date: 20240130
  Receipt Date: 20240130
  Transmission Date: 20240410
  Serious: Yes (Death, Life-Threatening, Other)
  Sender: FDA-Public Use
  Company Number: US-DRL-USA-LIT/USA/23/0032262

PATIENT
  Age: 6 Decade
  Sex: Male

DRUGS (6)
  1. DOCETAXEL [Suspect]
     Active Substance: DOCETAXEL\DOCETAXEL ANHYDROUS
     Indication: Transitional cell carcinoma
     Route: 043
  2. GEMCITABINE [Suspect]
     Active Substance: GEMCITABINE
     Indication: Transitional cell carcinoma
  3. CARBOPLATIN [Suspect]
     Active Substance: CARBOPLATIN
     Indication: Transitional cell carcinoma
  4. AVELUMAB [Suspect]
     Active Substance: AVELUMAB
     Indication: Transitional cell carcinoma
  5. BCG VACCINE [Suspect]
     Active Substance: BCG VACCINE
     Indication: Transitional cell carcinoma
     Dosage: TOTAL OF SIX DOSES
     Route: 043
  6. APIXABAN [Concomitant]
     Active Substance: APIXABAN
     Indication: Pulmonary embolism

REACTIONS (5)
  - Cardiac arrest [Fatal]
  - Metastases to lymph nodes [Unknown]
  - Metastases to liver [Unknown]
  - Neoplasm progression [Unknown]
  - Drug ineffective [Unknown]
